FAERS Safety Report 22210365 (Version 1)
Quarter: 2023Q2

REPORT INFORMATION
  Report Type: Spontaneous
  Country: GB (occurrence: GB)
  Receive Date: 20230414
  Receipt Date: 20230414
  Transmission Date: 20230722
  Serious: Yes (Disabling)
  Sender: FDA-Public Use
  Company Number: GB-MHRA-MED-202303291117423000-HFSRY

PATIENT
  Age: 61 Year
  Sex: Female

DRUGS (4)
  1. BACLOFEN [Suspect]
     Active Substance: BACLOFEN
     Indication: Spinal pain
     Dosage: 30 MILLIGRAM DAILY;
     Route: 065
     Dates: start: 20230326, end: 20230327
  2. GABAPENTIN [Concomitant]
     Active Substance: GABAPENTIN
     Indication: Neuralgia
  3. LETROZOLE [Concomitant]
     Active Substance: LETROZOLE
     Indication: Breast cancer
  4. OMEPRAZOLE [Concomitant]
     Active Substance: OMEPRAZOLE
     Indication: Gastrooesophageal reflux disease

REACTIONS (8)
  - Cognitive disorder [Unknown]
  - Fatigue [Unknown]
  - Dizziness [Unknown]
  - Muscle spasms [Unknown]
  - Headache [Unknown]
  - Coordination abnormal [Unknown]
  - Renal impairment [Unknown]
  - Myalgia [Recovered/Resolved]

NARRATIVE: CASE EVENT DATE: 20230327
